FAERS Safety Report 8617741-2 (Version None)
Quarter: 2012Q3

REPORT INFORMATION
  Report Type: 
  Country: None (occurrence: None)
  Receive Date: 20120824
  Receipt Date: 20120221
  Transmission Date: 20120928
  Serious: No
  Sender: FDA-Public Use
  Company Number: US-ASTRAZENECA-2012SE02156

PATIENT
  Age: 70 Year
  Sex: Female
  Weight: 131.5 kg

DRUGS (3)
  1. METFORMIN HCL [Concomitant]
     Indication: DIABETES MELLITUS
  2. SYMBICORT [Suspect]
     Indication: ASTHMA
     Dosage: 160/4.5 MCG, TWO PUFFS TWO TIMES A DAY
     Route: 055
     Dates: start: 20090101
  3. STEROID MEDICATION [Concomitant]
     Indication: ASTHMA

REACTIONS (7)
  - INCORRECT DOSE ADMINISTERED BY DEVICE [None]
  - RESPIRATORY DISORDER [None]
  - DIABETES MELLITUS [None]
  - PULMONARY CONGESTION [None]
  - ORAL PAIN [None]
  - MALAISE [None]
  - COUGH [None]
